FAERS Safety Report 19069521 (Version 1)
Quarter: 2021Q1

REPORT INFORMATION
  Report Type: Spontaneous
  Country: JP (occurrence: JP)
  Receive Date: 20210329
  Receipt Date: 20210329
  Transmission Date: 20210420
  Serious: Yes (Other)
  Sender: FDA-Public Use
  Company Number: JP-PFIZER INC-2021292002

PATIENT
  Age: 47 Year
  Sex: Male

DRUGS (1)
  1. VIBRAMYCIN [Suspect]
     Active Substance: DOXYCYCLINE
     Dosage: 200 MG, DAILY
     Route: 048

REACTIONS (1)
  - Oesophageal ulcer [Unknown]
